FAERS Safety Report 18361009 (Version 1)
Quarter: 2020Q4

REPORT INFORMATION
  Report Type: Spontaneous
  Country: UA (occurrence: UA)
  Receive Date: 20201008
  Receipt Date: 20201008
  Transmission Date: 20210114
  Serious: Yes (Hospitalization, Other)
  Sender: FDA-Public Use
  Company Number: UA-ASTRAZENECA-2020SF26884

PATIENT
  Age: 40 Year
  Sex: Male

DRUGS (1)
  1. SYMBICORT [Suspect]
     Active Substance: BUDESONIDE\FORMOTEROL FUMARATE DIHYDRATE
     Indication: ASTHMA
     Dosage: SYMBICORT 320/9 TWO INHALATION THREE TIMES A DAY
     Route: 055
     Dates: start: 20200401, end: 20200928

REACTIONS (4)
  - Overdose [Recovered/Resolved]
  - Blood pressure increased [Recovered/Resolved]
  - COVID-19 pneumonia [Recovering/Resolving]
  - Tremor [Recovered/Resolved]

NARRATIVE: CASE EVENT DATE: 20200401
